FAERS Safety Report 6511380-5 (Version None)
Quarter: 2009Q4

REPORT INFORMATION
  Report Type: 
  Country: None (occurrence: None)
  Receive Date: 20091222
  Receipt Date: 20090309
  Transmission Date: 20100525
  Serious: No
  Sender: FDA-Public Use
  Company Number: US-ASTRAZENECA-2009UW06125

PATIENT
  Age: 84 Year
  Sex: Female
  Weight: 60.8 kg

DRUGS (3)
  1. CRESTOR [Suspect]
     Indication: BLOOD CHOLESTEROL INCREASED
     Route: 048
     Dates: end: 20070101
  2. PLAVIX [Concomitant]
  3. BLOOD PRESSURE MEDICINE [Concomitant]

REACTIONS (5)
  - HYPOAESTHESIA [None]
  - MYALGIA [None]
  - OEDEMA PERIPHERAL [None]
  - SKIN DISCOLOURATION [None]
  - WHEELCHAIR USER [None]
